FAERS Safety Report 10658526 (Version 1)
Quarter: 2014Q4

REPORT INFORMATION
  Report Type: Spontaneous
  Country: US (occurrence: None)
  Receive Date: 20141205
  Receipt Date: 20141205
  Transmission Date: 20150529
  Serious: Yes (Hospitalization)
  Sender: FDA-Public Use
  Company Number: USA-2014100190

PATIENT
  Age: 57 Year
  Sex: Female
  Weight: 115.67 kg

DRUGS (9)
  1. POMALYST [Suspect]
     Active Substance: POMALIDOMIDE
     Indication: PLASMA CELL MYELOMA
     Dosage: 21 IN 28 D
     Route: 048
     Dates: start: 20140111
  2. FLORANEX [Concomitant]
  3. ACYCLOVIR. [Concomitant]
     Active Substance: ACYCLOVIR
  4. FLUCONAZOLE. [Concomitant]
     Active Substance: FLUCONAZOLE
  5. CALCITRIOL. [Concomitant]
     Active Substance: CALCITRIOL
  6. DULCOLAX [Concomitant]
     Active Substance: BISACODYL OR DOCUSATE SODIUM
  7. DECADRON [Concomitant]
     Active Substance: DEXAMETHASONE
  8. COUMADIN [Concomitant]
     Active Substance: WARFARIN SODIUM
  9. DAPSONE. [Concomitant]
     Active Substance: DAPSONE

REACTIONS (2)
  - Anaemia [None]
  - Constipation [None]

NARRATIVE: CASE EVENT DATE: 20140111
